FAERS Safety Report 20136293 (Version 1)
Quarter: 2021Q4

REPORT INFORMATION
  Report Type: Report from Study
  Country: US (occurrence: None)
  Receive Date: 20211201
  Receipt Date: 20211201
  Transmission Date: 20220303
  Serious: Yes (Death)
  Sender: FDA-Public Use
  Company Number: 2021A843976

PATIENT
  Age: 23839 Day
  Sex: Male
  Weight: 88 kg

DRUGS (1)
  1. CALQUENCE [Suspect]
     Active Substance: ACALABRUTINIB
     Indication: Lymphocytic leukaemia
     Route: 048
     Dates: start: 20210506

REACTIONS (1)
  - Death [Fatal]

NARRATIVE: CASE EVENT DATE: 20211125
